FAERS Safety Report 9018625 (Version 1)
Quarter: 2013Q1

REPORT INFORMATION
  Report Type: Spontaneous
  Country: US (occurrence: US)
  Receive Date: 20130118
  Receipt Date: 20130118
  Transmission Date: 20140127
  Serious: Yes (Death)
  Sender: FDA-Public Use
  Company Number: US-PFIZER INC-2013020189

PATIENT
  Age: 41 Year
  Sex: Female

DRUGS (2)
  1. REVATIO [Suspect]
     Indication: ATRIAL SEPTAL DEFECT
     Dosage: 20 MG, 2X/DAY
     Dates: start: 20120817
  2. REVATIO [Suspect]
     Indication: PULMONARY HYPERTENSION

REACTIONS (2)
  - Atrial septal defect [Fatal]
  - Cardiac failure [Fatal]
